FAERS Safety Report 6786138-2 (Version None)
Quarter: 2010Q2

REPORT INFORMATION
  Report Type: 
  Country: None (occurrence: None)
  Receive Date: 20100621
  Receipt Date: 20100621
  Transmission Date: 20101027
  Serious: No
  Sender: FDA-Public Use
  Company Number: None

PATIENT
  Age: 23 Year
  Sex: Male
  Weight: 90.7194 kg

DRUGS (1)
  1. CLONAZEPAM [Suspect]

REACTIONS (4)
  - AGGRESSION [None]
  - AMNESIA [None]
  - DEPRESSION [None]
  - SUICIDAL BEHAVIOUR [None]
